FAERS Safety Report 9643066 (Version 1)
Quarter: 2013Q4

REPORT INFORMATION
  Report Type: Spontaneous
  Country: FR (occurrence: None)
  Receive Date: 20131022
  Receipt Date: 20131022
  Transmission Date: 20140711
  Serious: Yes (Hospitalization)
  Sender: FDA-Public Use
  Company Number: FK201304637

PATIENT
  Age: 56 Year
  Sex: Female

DRUGS (1)
  1. POTASSIUM CHLORIDE [Suspect]
     Indication: HYPOKALAEMIA
     Dosage: 1 IN 6 HRS
     Route: 042
     Dates: start: 20130524, end: 20130525

REACTIONS (2)
  - Extravasation [None]
  - Skin necrosis [None]
